FAERS Safety Report 4513997-6 (Version None)
Quarter: 2004Q4

REPORT INFORMATION
  Report Type: 
  Country: None (occurrence: None)
  Receive Date: 20041130
  Receipt Date: 20041015
  Transmission Date: 20050328
  Serious: No
  Sender: FDA-Public Use
  Company Number: US-GLAXOSMITHKLINE-A0530013A

PATIENT
  Age: 17 Year
  Sex: Male

DRUGS (2)
  1. WELLBUTRIN XL [Suspect]
     Indication: DEPRESSION
     Dosage: 150MG PER DAY
     Route: 048
     Dates: start: 20040901, end: 20041001
  2. CONCERTA [Concomitant]

REACTIONS (4)
  - ABDOMINAL PAIN UPPER [None]
  - AGITATION [None]
  - HEART RATE INCREASED [None]
  - PALPITATIONS [None]
